FAERS Safety Report 9029825 (Version 2)
Quarter: 2013Q2

REPORT INFORMATION
  Report Type: Report from Study
  Country: VE (occurrence: VE)
  Receive Date: 20130124
  Receipt Date: 20130513
  Transmission Date: 20140414
  Serious: Yes (Death)
  Sender: FDA-Public Use
  Company Number: PHHY2011VE117649

PATIENT
  Sex: Male

DRUGS (2)
  1. DIOVAN [Suspect]
     Dosage: UNK UKN, UNK
  2. ANTIHYPERTENSIVE DRUGS [Concomitant]
     Dosage: UNK UKN, UNK

REACTIONS (1)
  - Respiratory arrest [Fatal]
